FAERS Safety Report 21390048 (Version 1)
Quarter: 2022Q3

REPORT INFORMATION
  Report Type: Spontaneous
  Country: CN (occurrence: CN)
  Receive Date: 20220929
  Receipt Date: 20220929
  Transmission Date: 20221027
  Serious: Yes (Other)
  Sender: FDA-Public Use
  Company Number: CN-SUN PHARMACEUTICAL INDUSTRIES LTD-2022R1-356659

PATIENT
  Age: 58 Year
  Sex: Female

DRUGS (3)
  1. CAPECITABINE [Suspect]
     Active Substance: CAPECITABINE
     Indication: Chemotherapy
     Dosage: UNK (8 CYCLES)
     Route: 065
     Dates: start: 202005, end: 202010
  2. CAPECITABINE [Suspect]
     Active Substance: CAPECITABINE
     Dosage: 825 MILLIGRAM/SQ. METER, BID
     Route: 065
     Dates: start: 202107
  3. OXALIPLATIN [Suspect]
     Active Substance: OXALIPLATIN
     Indication: Chemotherapy
     Dosage: UNK (8 CYCLES)
     Route: 065
     Dates: start: 202005, end: 202010

REACTIONS (1)
  - Pelvic venous thrombosis [Recovered/Resolved]

NARRATIVE: CASE EVENT DATE: 20210621
